FAERS Safety Report 11796418 (Version 7)
Quarter: 2016Q3

REPORT INFORMATION
  Report Type: Report from Study
  Country: US (occurrence: US)
  Receive Date: 20151203
  Receipt Date: 20160815
  Transmission Date: 20161109
  Serious: Yes (Hospitalization)
  Sender: FDA-Public Use
  Company Number: US-NOVOPROD-471272

PATIENT
  Age: 68 Year
  Sex: Male
  Weight: 83.1 kg

DRUGS (23)
  1. IDEG 100U VIAL [Suspect]
     Active Substance: INSULIN DEGLUDEC
     Dosage: DECREASED DOSE
     Route: 058
  2. LORATADINE. [Concomitant]
     Active Substance: LORATADINE
     Dates: start: 20151130
  3. COLACE [Concomitant]
     Active Substance: DOCUSATE SODIUM
     Dates: start: 20151130
  4. NITROGLYCERIN. [Concomitant]
     Active Substance: NITROGLYCERIN
     Dosage: UNK
     Dates: start: 20151114, end: 20151114
  5. ONDANSETRON HCL [Concomitant]
     Active Substance: ONDANSETRON HYDROCHLORIDE
     Dates: start: 20151114, end: 20151114
  6. PRAZOSIN [Concomitant]
     Active Substance: PRAZOSIN
     Dates: start: 20151130
  7. NOVORAPID [Suspect]
     Active Substance: INSULIN ASPART
     Indication: TYPE 2 DIABETES MELLITUS
     Dosage: 56 U, QD
     Route: 058
     Dates: start: 20141007
  8. LOVENOX [Concomitant]
     Active Substance: ENOXAPARIN SODIUM
     Dates: start: 201511, end: 201511
  9. LIDODERM [Concomitant]
     Active Substance: LIDOCAINE
     Dates: start: 201511
  10. IDEG 100U VIAL [Suspect]
     Active Substance: INSULIN DEGLUDEC
     Indication: TYPE 2 DIABETES MELLITUS
     Dosage: 90 U, QD
     Route: 058
     Dates: start: 20141007
  11. CONTRAST MEDIA [Concomitant]
     Active Substance: UNSPECIFIED INGREDIENT
     Dates: start: 20151114, end: 20151114
  12. EPINEPHRINE W/LIDOCAINE [Concomitant]
     Dates: start: 20151114, end: 20151114
  13. PERCOCET [Concomitant]
     Active Substance: ACETAMINOPHEN\OXYCODONE HYDROCHLORIDE
     Dates: start: 201511
  14. ASPIRIN                            /00002701/ [Concomitant]
     Active Substance: ASPIRIN
     Dosage: UNK
     Dates: start: 20151114, end: 20151114
  15. HYDROMORPHONE HCL [Concomitant]
     Active Substance: HYDROMORPHONE HYDROCHLORIDE
     Dates: start: 20151114, end: 20151114
  16. SIMETHICONE (DIMETHICONE) [Concomitant]
     Active Substance: DIMETHICONE
     Dates: start: 20151130
  17. IOPAMIDOL [Concomitant]
     Active Substance: IOPAMIDOL
     Dates: start: 20151114, end: 20151114
  18. ISOTONIC SODIUM CHLORIDE SOLUTION [Concomitant]
     Active Substance: SODIUM CHLORIDE
     Dosage: 1000ML
     Dates: start: 20151114, end: 20151114
  19. HYDROCHLOROTHIAZIDE. [Concomitant]
     Active Substance: HYDROCHLOROTHIAZIDE
     Dates: start: 20151130
  20. NOVORAPID [Suspect]
     Active Substance: INSULIN ASPART
     Dosage: DOSE DECREASED
     Route: 058
  21. FENTANYL CITRATE. [Concomitant]
     Active Substance: FENTANYL CITRATE
     Dates: start: 20151114, end: 20151114
  22. ROBAXIN [Concomitant]
     Active Substance: METHOCARBAMOL
     Dates: start: 201511
  23. ISOTONIC SODIUM CHLORIDE SOLUTION [Concomitant]
     Active Substance: SODIUM CHLORIDE
     Dosage: 10ML
     Dates: start: 20151114, end: 20151114

REACTIONS (5)
  - Joint dislocation [Recovered/Resolved with Sequelae]
  - Rib fracture [Recovered/Resolved with Sequelae]
  - Subarachnoid haemorrhage [Recovered/Resolved]
  - Fall [Recovered/Resolved]
  - Post concussion syndrome [Recovering/Resolving]

NARRATIVE: CASE EVENT DATE: 20151114
